FAERS Safety Report 14960001 (Version 4)
Quarter: 2018Q3

REPORT INFORMATION
  Report Type: Report from Study
  Country: DE (occurrence: DE)
  Receive Date: 20180531
  Receipt Date: 20180815
  Transmission Date: 20181010
  Serious: Yes (Hospitalization, Other)
  Sender: FDA-Public Use
  Company Number: DE-GILEAD-2018-0341335

PATIENT
  Age: 63 Year
  Sex: Female
  Weight: 68 kg

DRUGS (11)
  1. DULCOLAX (BISACODYL) [Concomitant]
     Active Substance: BISACODYL
  2. HYALURONIC ACID [Concomitant]
     Active Substance: HYALURONIC ACID
  3. TRAUMEEL [Concomitant]
  4. MOVICOL [Concomitant]
     Active Substance: POLYETHYLENE GLYCOL 3350\POTASSIUM CHLORIDE\SODIUM BICARBONATE\SODIUM CHLORIDE
  5. VOLTAREN [Concomitant]
     Active Substance: DICLOFENAC SODIUM
  6. DACLATASVIR DIHYDROCHLORIDE [Suspect]
     Active Substance: DACLATASVIR DIHYDROCHLORIDE
     Indication: CHRONIC HEPATITIS C
     Dosage: 60 MG, QD
     Route: 048
     Dates: start: 20150702, end: 20150924
  7. VITAMINS                           /00067501/ [Concomitant]
     Active Substance: VITAMINS
  8. DEKRISTOL [Concomitant]
     Active Substance: CHOLECALCIFEROL
  9. SOFOSBUVIR [Suspect]
     Active Substance: SOFOSBUVIR
     Dosage: 400 MG, QD
     Route: 048
     Dates: start: 20150702, end: 20150924
  10. ZEEL [Concomitant]
  11. SALMON OIL [Concomitant]
     Active Substance: FISH OIL

REACTIONS (10)
  - Abdominal distension [Recovered/Resolved]
  - Hepatocellular carcinoma [Recovering/Resolving]
  - Body temperature increased [Not Recovered/Not Resolved]
  - Skin disorder [Recovered/Resolved]
  - Gait disturbance [Not Recovered/Not Resolved]
  - Myalgia [Recovered/Resolved]
  - Memory impairment [Unknown]
  - Arthralgia [Unknown]
  - Drug dose omission [Not Recovered/Not Resolved]
  - Fatigue [Recovered/Resolved]

NARRATIVE: CASE EVENT DATE: 20150703
